FAERS Safety Report 10259882 (Version 2)
Quarter: 2014Q3

REPORT INFORMATION
  Report Type: Spontaneous
  Country: GB (occurrence: GB)
  Receive Date: 20140625
  Receipt Date: 20140822
  Transmission Date: 20150326
  Serious: Yes (Hospitalization)
  Sender: FDA-Public Use
  Company Number: GB-GLAXOSMITHKLINE-B1005094A

PATIENT
  Age: 1 Year
  Sex: Male
  Weight: 12.5 kg

DRUGS (3)
  1. ACICLOVIR [Suspect]
     Active Substance: ACYCLOVIR
     Indication: ENCEPHALITIS VIRAL
  2. UNSPECIFIED MEDICATIONS [Concomitant]
     Active Substance: UNSPECIFIED INGREDIENT
     Indication: PRODUCT USED FOR UNKNOWN INDICATION
  3. SODIUM CHLORIDE. [Suspect]
     Active Substance: SODIUM CHLORIDE
     Indication: MEDICATION DILUTION
     Route: 042

REACTIONS (1)
  - Extravasation [Unknown]

NARRATIVE: CASE EVENT DATE: 20140518
